FAERS Safety Report 24073253 (Version 3)
Quarter: 2024Q3

REPORT INFORMATION
  Report Type: Spontaneous
  Country: CN (occurrence: CN)
  Receive Date: 20240710
  Receipt Date: 20240802
  Transmission Date: 20241017
  Serious: Yes (Other)
  Sender: ACCORD
  Company Number: CN-HENLIUS-24CN015672

PATIENT
  Age: 69 Year
  Sex: Female

DRUGS (9)
  1. GEMCITABINE [Suspect]
     Active Substance: GEMCITABINE
     Indication: Pancreaticobiliary carcinoma
     Dosage: 1.4 GRAM, Q2W, IV DRIP
     Route: 042
     Dates: start: 20240522, end: 20240522
  2. TRASTUZUMAB [Suspect]
     Active Substance: TRASTUZUMAB
     Indication: Metastases to lymph nodes
     Dosage: STRENGTH: 150 MG, Q3W, IV DRIP
     Route: 042
     Dates: start: 202403
  3. PACLITAXEL [Suspect]
     Active Substance: PACLITAXEL
     Indication: Pancreaticobiliary carcinoma
     Dosage: 240 MILLIGRAM,  IV DRIP
     Route: 042
     Dates: start: 20240522, end: 20240522
  4. SERPLULIMAB [Suspect]
     Active Substance: SERPLULIMAB
     Indication: Pancreaticobiliary carcinoma
     Dosage: STRENGTH: 10 MG/ML, Q3W, IV DRIP
     Route: 042
     Dates: start: 202403
  5. SERPLULIMAB [Suspect]
     Active Substance: SERPLULIMAB
     Indication: Pancreaticobiliary carcinoma
     Dosage: STRENGTH: 10 MG/ML, Q3W, IV DRIP
     Route: 042
     Dates: start: 20240521, end: 20240521
  6. SERPLULIMAB [Suspect]
     Active Substance: SERPLULIMAB
     Indication: Pancreaticobiliary carcinoma
     Dosage: STRENGTH: 10 MG/ML, Q3W, IV DRIP
     Route: 042
     Dates: start: 20240702
  7. GEMCITABINE [Suspect]
     Active Substance: GEMCITABINE
     Indication: Metastases to lymph nodes
     Dosage: 1.4 GRAM, Q2W
     Dates: start: 20240522, end: 20240522
  8. TRASTUZUMAB [Suspect]
     Active Substance: TRASTUZUMAB
     Indication: Metastases to lymph nodes
     Dosage: STRENGTH: 150 MG, Q3W, IV DRIP
     Route: 042
     Dates: start: 20240521, end: 20240521
  9. TRASTUZUMAB [Suspect]
     Active Substance: TRASTUZUMAB
     Indication: Metastases to lymph nodes
     Dosage: STRENGTH: 150 MG, Q3W, IV DRIP
     Route: 042
     Dates: start: 202407

REACTIONS (8)
  - Myelosuppression [Recovering/Resolving]
  - Drug-induced liver injury [Recovered/Resolved]
  - Hypokalaemia [Not Recovered/Not Resolved]
  - Malnutrition [Recovering/Resolving]
  - Pyrexia [Recovered/Resolved]
  - Dermatitis allergic [Recovered/Resolved]
  - Insomnia [Recovering/Resolving]
  - Cough [Recovered/Resolved]

NARRATIVE: CASE EVENT DATE: 20240521
